FAERS Safety Report 5407470-0 (Version None)
Quarter: 2007Q3

REPORT INFORMATION
  Report Type: 
  Country: None (occurrence: None)
  Receive Date: 20070807
  Receipt Date: 20070726
  Transmission Date: 20080115
  Serious: Yes (Other)
  Sender: FDA-Public Use
  Company Number: US-ELI_LILLY_AND_COMPANY-US200707006322

PATIENT
  Sex: Female

DRUGS (1)
  1. PROZAC [Suspect]
     Route: 064
     Dates: end: 20070709

REACTIONS (2)
  - DRUG EXPOSURE DURING PREGNANCY [None]
  - DRUG WITHDRAWAL SYNDROME NEONATAL [None]
